FAERS Safety Report 17233104 (Version 2)
Quarter: 2020Q1

REPORT INFORMATION
  Report Type: Spontaneous
  Country: EG (occurrence: EG)
  Receive Date: 20200104
  Receipt Date: 20200127
  Transmission Date: 20200409
  Serious: Yes (Hospitalization, Other)
  Sender: FDA-Public Use
  Company Number: NVSC2019EG084803

PATIENT
  Sex: Female

DRUGS (1)
  1. GLIVEC [Suspect]
     Active Substance: IMATINIB MESYLATE
     Indication: CHRONIC MYELOID LEUKAEMIA
     Dosage: UNK UNK, QD
     Route: 048
     Dates: start: 2017, end: 2020

REACTIONS (11)
  - Myelofibrosis [Not Recovered/Not Resolved]
  - Haemoglobin decreased [Unknown]
  - Cytogenetic analysis abnormal [Unknown]
  - Leukopenia [Not Recovered/Not Resolved]
  - Pneumonia [Recovered/Resolved]
  - Anaemia [Not Recovered/Not Resolved]
  - Full blood count abnormal [Recovered/Resolved]
  - Platelet count decreased [Unknown]
  - Wrong technique in product usage process [Not Recovered/Not Resolved]
  - White blood cell count decreased [Unknown]
  - Pancytopenia [Not Recovered/Not Resolved]

NARRATIVE: CASE EVENT DATE: 2017
